FAERS Safety Report 7456656-2 (Version None)
Quarter: 2011Q2

REPORT INFORMATION
  Report Type: 
  Country: None (occurrence: None)
  Receive Date: 20110503
  Receipt Date: 20110502
  Transmission Date: 20111010
  Serious: Yes (Hospitalization)
  Sender: FDA-Public Use
  Company Number: US-PFIZER INC-2011093868

PATIENT
  Sex: Female
  Weight: 53.061 kg

DRUGS (4)
  1. EFFEXOR XR [Suspect]
     Indication: DEPRESSION
     Dosage: 75 MG DAILY
     Route: 048
     Dates: start: 19950101
  2. EFFEXOR XR [Suspect]
     Dosage: 37.5 MG DAILY
     Route: 048
  3. ASPIRIN [Concomitant]
     Dosage: UNK
  4. ACETAMINOPHEN [Concomitant]
     Indication: PAIN
     Dosage: 1500 MG, 1X/DAY
     Route: 048

REACTIONS (5)
  - WEIGHT DECREASED [None]
  - DRUG INEFFECTIVE [None]
  - EMOTIONAL DISORDER [None]
  - CRYING [None]
  - EYE DISORDER [None]
